FAERS Safety Report 16347398 (Version 2)
Quarter: 2019Q2

REPORT INFORMATION
  Report Type: Report from Study
  Country: CO (occurrence: CO)
  Receive Date: 20190523
  Receipt Date: 20190627
  Transmission Date: 20190711
  Serious: Yes (Other)
  Sender: FDA-Public Use
  Company Number: CO-SA-2017SA229441

PATIENT
  Age: 23 Year
  Sex: Female

DRUGS (1)
  1. ALEMTUZUMAB [Suspect]
     Active Substance: ALEMTUZUMAB
     Indication: MULTIPLE SCLEROSIS
     Dosage: 12 MG,QD
     Route: 041
     Dates: start: 20171012, end: 20171016

REACTIONS (12)
  - Haematuria [Recovered/Resolved]
  - Crystal urine present [Recovered/Resolved]
  - Blood creatinine decreased [Recovered/Resolved]
  - Neutrophil count increased [Recovered/Resolved]
  - Urinary tract infection bacterial [Unknown]
  - Bacteriuria [Not Recovered/Not Resolved]
  - Blood thyroid stimulating hormone increased [Not Recovered/Not Resolved]
  - Lymphocyte count decreased [Recovered/Resolved]
  - Monocyte count decreased [Recovered/Resolved]
  - Protein urine present [Not Recovered/Not Resolved]
  - Red blood cells urine positive [Not Recovered/Not Resolved]
  - Leukocyturia [Not Recovered/Not Resolved]

NARRATIVE: CASE EVENT DATE: 20171115
